FAERS Safety Report 7731880-X (Version None)
Quarter: 2011Q3

REPORT INFORMATION
  Report Type: 
  Country: None (occurrence: None)
  Receive Date: 20110906
  Receipt Date: 20110712
  Transmission Date: 20111222
  Serious: No
  Sender: FDA-Public Use
  Company Number: US-AMGEN-USASP2011035355

PATIENT
  Age: 89 Year
  Sex: Female

DRUGS (5)
  1. ASPIRIN [Concomitant]
  2. PROLIA [Suspect]
     Indication: OSTEOPOROSIS POSTMENOPAUSAL
     Dosage: UNK
     Dates: start: 20110301
  3. MULTIVITAMIN                       /00097801/ [Concomitant]
  4. FISH OIL [Concomitant]
  5. VITAMIN D [Concomitant]

REACTIONS (3)
  - MOBILITY DECREASED [None]
  - MUSCULOSKELETAL PAIN [None]
  - LOCALISED INFECTION [None]
